FAERS Safety Report 5307881-8 (Version None)
Quarter: 2007Q2

REPORT INFORMATION
  Report Type: 
  Country: None (occurrence: None)
  Receive Date: 20070420
  Receipt Date: 20070404
  Transmission Date: 20071010
  Serious: Yes (Other)
  Sender: FDA-Public Use
  Company Number: 8023146

PATIENT
  Age: 19 Year
  Sex: Male

DRUGS (2)
  1. KEPPRA [Suspect]
     Indication: CONVULSION PROPHYLAXIS
     Dosage: PO
     Route: 048
  2. CEFTRIAXONE [Concomitant]

REACTIONS (1)
  - HYPOGAMMAGLOBULINAEMIA [None]
